FAERS Safety Report 4786501-5 (Version None)
Quarter: 2005Q3

REPORT INFORMATION
  Report Type: 
  Country: None (occurrence: None)
  Receive Date: 20050914
  Receipt Date: 20050210
  Transmission Date: 20060218
  Serious: Yes (Hospitalization, Other)
  Sender: FDA-Public Use
  Company Number: 163-20785-05020216

PATIENT
  Age: 65 Year
  Sex: Male

DRUGS (6)
  1. THALOMID [Suspect]
     Indication: MULTIPLE MYELOMA
     Dosage: 200 MG, 100MG PO B.I.D. (TWICE DAILY), ORAL
     Route: 048
     Dates: start: 20041011, end: 20050101
  2. HYDROCHLOROTHIAZIDE [Concomitant]
  3. OMEPRAZOLE [Concomitant]
  4. PREDNISONE TAB [Concomitant]
  5. VICODIN [Concomitant]
  6. DEXAMETHASONE [Concomitant]

REACTIONS (1)
  - PULMONARY EMBOLISM [None]
